FAERS Safety Report 7879367-8 (Version None)
Quarter: 2011Q4

REPORT INFORMATION
  Report Type: 
  Country: None (occurrence: None)
  Receive Date: 20111101
  Receipt Date: 20111021
  Transmission Date: 20120403
  Serious: Yes (Life-Threatening, Hospitalization)
  Sender: FDA-Public Use
  Company Number: US-BAYER-2011-037216

PATIENT
  Age: 35 Year
  Sex: Female
  Weight: 77 kg

DRUGS (5)
  1. VICODIN [Concomitant]
  2. MOTRIN [Concomitant]
  3. IBUPROFEN [Concomitant]
  4. YAZ [Suspect]
     Dosage: UNK
     Dates: start: 20080201, end: 20090501
  5. PLAVIX [Concomitant]

REACTIONS (8)
  - THROMBOSIS [None]
  - INJURY [None]
  - PAIN [None]
  - DEEP VEIN THROMBOSIS [None]
  - ANHEDONIA [None]
  - PULMONARY EMBOLISM [None]
  - GENERAL PHYSICAL HEALTH DETERIORATION [None]
  - EMOTIONAL DISTRESS [None]
